FAERS Safety Report 4545752-5 (Version None)
Quarter: 2005Q1

REPORT INFORMATION
  Report Type: 
  Country: None (occurrence: None)
  Receive Date: 20050103
  Receipt Date: 20041213
  Transmission Date: 20050727
  Serious: Yes (Other)
  Sender: FDA-Public Use
  Company Number: US_0412109358

PATIENT
  Age: 63 Year
  Sex: Male
  Weight: 120 kg

DRUGS (1)
  1. HUMULIN 70/30 [Suspect]
     Indication: DIABETES MELLITUS
     Dates: start: 19961001

REACTIONS (14)
  - BLOOD GLUCOSE INCREASED [None]
  - CAPILLARY DISORDER [None]
  - CELLULITIS [None]
  - EXCORIATION [None]
  - FLUID RETENTION [None]
  - IMPAIRED HEALING [None]
  - INJURY [None]
  - NEUROPATHY [None]
  - PHARMACEUTICAL PRODUCT COMPLAINT [None]
  - SCRATCH [None]
  - SKIN GRAFT INFECTION [None]
  - TOE AMPUTATION [None]
  - ULCER [None]
  - WEIGHT INCREASED [None]
